FAERS Safety Report 9539010 (Version 1)
Quarter: 2013Q3

REPORT INFORMATION
  Report Type: Spontaneous
  Country: FR (occurrence: FR)
  Receive Date: 20130920
  Receipt Date: 20130920
  Transmission Date: 20140515
  Serious: Yes (Hospitalization)
  Sender: FDA-Public Use
  Company Number: FR-PFIZER INC-2013266184

PATIENT
  Age: 65 Year
  Sex: Female

DRUGS (6)
  1. CADUET [Suspect]
     Indication: HYPERCHOLESTEROLAEMIA
     Dosage: 10MG/10MG, 1X/DAY
     Route: 048
     Dates: start: 20070320, end: 20070404
  2. TAREG [Concomitant]
     Indication: HYPERTENSION
     Dosage: 160 MG, 1X/DAY
     Route: 048
  3. LASILIX [Concomitant]
     Indication: HYPERTENSION
     Dosage: 40 MG, 1X/DAY
     Route: 048
  4. KARDEGIC [Concomitant]
     Dosage: 160 MG, 1X/DAY
     Route: 048
  5. LEVOTHYROX [Concomitant]
     Dosage: 75 UG, 1X/DAY
     Route: 048
  6. AMAREL [Concomitant]
     Indication: TYPE 2 DIABETES MELLITUS
     Dosage: 4 MG, 1X/DAY
     Route: 048

REACTIONS (2)
  - Hyperglycaemia [Recovered/Resolved]
  - Diabetes mellitus inadequate control [Recovered/Resolved]
